FAERS Safety Report 22252133 (Version 2)
Quarter: 2023Q2

REPORT INFORMATION
  Report Type: Spontaneous
  Country: JP (occurrence: JP)
  Receive Date: 20230425
  Receipt Date: 20230516
  Transmission Date: 20230721
  Serious: Yes (Other)
  Sender: FDA-Public Use
  Company Number: JP-002147023-NVSJ2023JP006830

PATIENT
  Age: 89 Year
  Sex: Female

DRUGS (2)
  1. PAZOPANIB [Suspect]
     Active Substance: PAZOPANIB
     Indication: Skin angiosarcoma
     Dosage: 400 MG
     Route: 065
  2. PAZOPANIB [Suspect]
     Active Substance: PAZOPANIB
     Indication: Palliative care
     Dosage: UNK,DOSE REDUCED
     Route: 065

REACTIONS (6)
  - Hepatic function abnormal [Unknown]
  - Skin angiosarcoma [Unknown]
  - Malignant neoplasm progression [Unknown]
  - Hypertension [Unknown]
  - Palmar-plantar erythrodysaesthesia syndrome [Unknown]
  - Therapeutic response decreased [Unknown]
